FAERS Safety Report 8405961-1 (Version None)
Quarter: 2012Q2

REPORT INFORMATION
  Report Type: 
  Country: None (occurrence: None)
  Receive Date: 20120604
  Receipt Date: 20120523
  Transmission Date: 20120825
  Serious: Yes (Hospitalization, Other)
  Sender: FDA-Public Use
  Company Number: US-JNJFOC-20120519117

PATIENT
  Sex: Female
  Weight: 80.74 kg

DRUGS (1)
  1. REMICADE [Suspect]
     Indication: RHEUMATOID ARTHRITIS
     Route: 042

REACTIONS (9)
  - CARDIAC ENZYMES INCREASED [None]
  - HEPATIC ENZYME INCREASED [None]
  - CHOLECYSTITIS INFECTIVE [None]
  - DEHYDRATION [None]
  - HYPERTENSION [None]
  - DIABETES MELLITUS [None]
  - FALL [None]
  - CHOLELITHIASIS [None]
  - PYREXIA [None]
